FAERS Safety Report 18469830 (Version 2)
Quarter: 2020Q4

REPORT INFORMATION
  Report Type: Spontaneous
  Country: DE (occurrence: DE)
  Receive Date: 20201105
  Receipt Date: 20201106
  Transmission Date: 20210114
  Serious: No
  Sender: FDA-Public Use
  Company Number: DE-PHOTOCURE ASA-HX-PM-DE-200300002

PATIENT

DRUGS (1)
  1. CYSVIEW [Suspect]
     Active Substance: HEXAMINOLEVULINATE HYDROCHLORIDE

REACTIONS (1)
  - Medication error [Unknown]
